FAERS Safety Report 11394294 (Version 1)
Quarter: 2015Q3

REPORT INFORMATION
  Report Type: Spontaneous
  Country: FR (occurrence: FR)
  Receive Date: 20150819
  Receipt Date: 20150819
  Transmission Date: 20151125
  Serious: Yes (Congenital Anomaly)
  Sender: FDA-Public Use
  Company Number: FR-JNJFOC-20150807970

PATIENT
  Age: 0 Year
  Sex: Female
  Weight: 3 kg

DRUGS (3)
  1. KIVEXA [Suspect]
     Active Substance: ABACAVIR SULFATE\LAMIVUDINE
     Indication: HIV INFECTION
     Route: 064
     Dates: start: 20150213, end: 20150507
  2. NORVIR [Suspect]
     Active Substance: RITONAVIR
     Indication: HIV INFECTION
     Route: 064
     Dates: start: 20150213, end: 20150507
  3. PREZISTA [Suspect]
     Active Substance: DARUNAVIR ETHANOLATE
     Indication: HIV INFECTION
     Route: 064
     Dates: start: 20150213, end: 20150507

REACTIONS (3)
  - Maxillonasal dysplasia [Not Recovered/Not Resolved]
  - Foetal exposure during pregnancy [Recovered/Resolved]
  - Congenital anomaly [Not Recovered/Not Resolved]

NARRATIVE: CASE EVENT DATE: 20150213
